FAERS Safety Report 5049485-0 (Version None)
Quarter: 2006Q3

REPORT INFORMATION
  Report Type: 
  Country: None (occurrence: None)
  Receive Date: 20060711
  Receipt Date: 20060711
  Transmission Date: 20061208
  Serious: Yes (Hospitalization)
  Sender: FDA-Public Use
  Company Number: None

PATIENT
  Sex: Female
  Weight: 49.9 kg

DRUGS (12)
  1. OXALIPLATIN [Suspect]
  2. CAPECITABINE [Suspect]
  3. ATIVAN [Concomitant]
  4. CALTRATE [Concomitant]
  5. DECADRON [Concomitant]
  6. DILAUDID [Concomitant]
  7. METHADONE HCL [Concomitant]
  8. NEURONTIN [Concomitant]
  9. OLANZAPINE [Concomitant]
  10. SYNTHROID [Concomitant]
  11. ZOFRAN [Concomitant]
  12. ZOLOFT [Concomitant]

REACTIONS (5)
  - DEHYDRATION [None]
  - HEADACHE [None]
  - NAUSEA [None]
  - PAIN [None]
  - VOMITING [None]
